FAERS Safety Report 11018834 (Version 2)
Quarter: 2015Q2

REPORT INFORMATION
  Report Type: Spontaneous
  Country: US (occurrence: US)
  Receive Date: 20150412
  Receipt Date: 20150524
  Transmission Date: 20150821
  Serious: No
  Sender: FDA-Public Use
  Company Number: US-JNJFOC-20141003162

PATIENT
  Sex: Female
  Weight: 68.04 kg

DRUGS (1)
  1. DOXIL [Suspect]
     Active Substance: DOXORUBICIN HYDROCHLORIDE
     Indication: OVARIAN CANCER STAGE III
     Route: 042
     Dates: start: 201408

REACTIONS (10)
  - Hyperhidrosis [Recovered/Resolved]
  - Stomatitis [Not Recovered/Not Resolved]
  - Myalgia [Recovered/Resolved]
  - Bedridden [Recovered/Resolved]
  - Alopecia [Not Recovered/Not Resolved]
  - Pharyngeal oedema [Not Recovered/Not Resolved]
  - Decreased appetite [Recovered/Resolved]
  - Asthenia [Recovered/Resolved]
  - Pain of skin [Not Recovered/Not Resolved]
  - Facial pain [Not Recovered/Not Resolved]

NARRATIVE: CASE EVENT DATE: 2014
